FAERS Safety Report 4521984-7 (Version None)
Quarter: 2004Q4

REPORT INFORMATION
  Report Type: 
  Country: None (occurrence: None)
  Receive Date: 20041206
  Receipt Date: 20041115
  Transmission Date: 20050328
  Serious: Yes (Hospitalization, Other)
  Sender: FDA-Public Use
  Company Number: 2004093935

PATIENT
  Sex: Female
  Weight: 53.5244 kg

DRUGS (13)
  1. BEXTRA [Suspect]
     Indication: FIBROMYALGIA
     Dosage: 10 MG, 1 IN 1 D, ORAL
     Route: 048
     Dates: start: 20040101
  2. GABAPENTIN [Concomitant]
  3. VICODIN [Concomitant]
  4. ACETAMINOPHEN [Concomitant]
  5. ALPRAZOLAM [Concomitant]
  6. TOCOPHEROL CONCENTRATE CAP [Concomitant]
  7. LIMBITROL (AMITRIPTYLINE HYDROCHLORIDE, CHLORDIAZEPOXIDE) [Concomitant]
  8. THERAGRAN (VITAMINS NOS) [Concomitant]
  9. BELLADENAL (BELLADONNA EXTRACT, PHENOBARBITAL) [Concomitant]
  10. CONJUGATED ESTROGENS [Concomitant]
  11. LEVOTHYROXINE SODIUM [Concomitant]
  12. ESTAZOLAM [Concomitant]
  13. AMITRIPTYLINE HYDROCHLORIDE [Concomitant]

REACTIONS (5)
  - ABASIA [None]
  - BLOOD PRESSURE INCREASED [None]
  - OEDEMA PERIPHERAL [None]
  - PAIN [None]
  - STRESS SYMPTOMS [None]
